FAERS Safety Report 20291697 (Version 2)
Quarter: 2022Q1

REPORT INFORMATION
  Report Type: Spontaneous
  Country: CN (occurrence: CN)
  Receive Date: 20220104
  Receipt Date: 20220131
  Transmission Date: 20220424
  Serious: Yes (Hospitalization)
  Sender: FDA-Public Use
  Company Number: CN-BAYER-2022A000650

PATIENT
  Age: 66 Year
  Sex: Male
  Weight: 64 kg

DRUGS (3)
  1. STIVARGA [Suspect]
     Active Substance: REGORAFENIB
     Indication: Hepatic cancer
  2. SINTILIMAB [Suspect]
     Active Substance: SINTILIMAB
     Indication: Immune enhancement therapy
     Dosage: 200 MG, QD
     Route: 041
     Dates: start: 20211220, end: 20211220
  3. SODIUM CHLORIDE [Concomitant]
     Active Substance: SODIUM CHLORIDE
     Indication: Immune enhancement therapy
     Dosage: 100 ML
     Route: 041
     Dates: start: 20211220

REACTIONS (2)
  - Hospitalisation [None]
  - Chills [Recovering/Resolving]

NARRATIVE: CASE EVENT DATE: 20211203
